FAERS Safety Report 4554787-8 (Version None)
Quarter: 2004Q4

REPORT INFORMATION
  Report Type: 
  Country: None (occurrence: None)
  Receive Date: 20041227
  Receipt Date: 20040802
  Transmission Date: 20050328
  Serious: No
  Sender: FDA-Public Use
  Company Number: 2004-0007330

PATIENT
  Sex: Female

DRUGS (3)
  1. VIREAD [Suspect]
  2. EFAVIRENZ (EFAVIRENZ) [Concomitant]
  3. METHADONE (METHADONE) [Concomitant]

REACTIONS (2)
  - DRUG INTERACTION INHIBITION [None]
  - DRUG WITHDRAWAL SYNDROME [None]
